FAERS Safety Report 7527068-8 (Version None)
Quarter: 2011Q2

REPORT INFORMATION
  Report Type: 
  Country: None (occurrence: None)
  Receive Date: 20110606
  Receipt Date: 20110527
  Transmission Date: 20111010
  Serious: Yes (Other)
  Sender: FDA-Public Use
  Company Number: US-RB-028134-11

PATIENT
  Age: 29 Year
  Sex: Male

DRUGS (2)
  1. ANTIDEPRESSANT [Suspect]
     Indication: DEPRESSION
     Dosage: UNKNOWN DOSING INFORMATION
     Route: 065
     Dates: end: 20110521
  2. SUBOXONE [Suspect]
     Indication: DRUG DEPENDENCE
     Dosage: SUBLINGUAL FILM
     Route: 060
     Dates: start: 20110101

REACTIONS (4)
  - CONVULSION [None]
  - FACE INJURY [None]
  - ROAD TRAFFIC ACCIDENT [None]
  - FACIAL PAIN [None]
